FAERS Safety Report 5775953-X (Version None)
Quarter: 2008Q2

REPORT INFORMATION
  Report Type: 
  Country: None (occurrence: None)
  Receive Date: 20080613
  Receipt Date: 20080604
  Transmission Date: 20081010
  Serious: Yes (Death)
  Sender: FDA-Public Use
  Company Number: ADE# 08-085

PATIENT
  Sex: Male

DRUGS (4)
  1. CLOZAPINE [Suspect]
     Dosage: 750MG AT BEDTIME
     Dates: start: 20061204, end: 20071101
  2. SIMVASTATIN [Concomitant]
  3. NEXIUM [Concomitant]
  4. BUPROPION HCL [Concomitant]

REACTIONS (1)
  - MYOCARDIAL INFARCTION [None]
